FAERS Safety Report 4459218-4 (Version None)
Quarter: 2004Q3

REPORT INFORMATION
  Report Type: 
  Country: None (occurrence: None)
  Receive Date: 20040920
  Receipt Date: 20040920
  Transmission Date: 20050211
  Serious: Yes (Hospitalization)
  Sender: FDA-Public Use
  Company Number: None

PATIENT
  Age: 54 Year
  Sex: Male
  Weight: 81.9 kg

DRUGS (10)
  1. IRINOTECAN [Suspect]
     Indication: COLON CANCER
     Dosage: 410 MG IV Q WEEKLY
     Route: 042
     Dates: start: 20040401, end: 20040501
  2. LOPERAMIDE HCL [Concomitant]
  3. FUROSEMIDE [Concomitant]
  4. SERTRALINE HCL [Concomitant]
  5. GABAPENTIN [Concomitant]
  6. FENTANYL [Concomitant]
  7. LISINOPRIL [Concomitant]
  8. VERAPAMIL [Concomitant]
  9. OCTRETIDE [Concomitant]
  10. CETUXIMAB [Concomitant]

REACTIONS (3)
  - HYPOGLYCAEMIA [None]
  - LOSS OF CONSCIOUSNESS [None]
  - POST PROCEDURAL DIARRHOEA [None]
